FAERS Safety Report 5642993-0 (Version None)
Quarter: 2008Q1

REPORT INFORMATION
  Report Type: 
  Country: None (occurrence: None)
  Receive Date: 20080228
  Receipt Date: 20080215
  Transmission Date: 20080703
  Serious: Yes (Hospitalization, Other)
  Sender: FDA-Public Use
  Company Number: B0508759A

PATIENT
  Age: 39 Year
  Sex: Male

DRUGS (3)
  1. ABACAVIR [Suspect]
     Indication: HIV INFECTION
     Route: 065
  2. KALETRA [Suspect]
     Indication: HIV INFECTION
     Route: 048
  3. TENOFOVIR [Suspect]
     Indication: HIV INFECTION
     Route: 065

REACTIONS (3)
  - ATYPICAL MYCOBACTERIAL INFECTION [None]
  - HAEMOGLOBIN DECREASED [None]
  - HAEMOLYSIS [None]
